FAERS Safety Report 7583462-0 (Version None)
Quarter: 2011Q2

REPORT INFORMATION
  Report Type: 
  Country: None (occurrence: None)
  Receive Date: 20110630
  Receipt Date: 20110622
  Transmission Date: 20111010
  Serious: Yes (Other)
  Sender: FDA-Public Use
  Company Number: FI-NOVOPROD-330425

PATIENT

DRUGS (2)
  1. PIOGLITAZONE                       /01460202/ [Concomitant]
  2. VICTOZA [Suspect]
     Indication: TYPE 2 DIABETES MELLITUS
     Dosage: 1.2
     Route: 058
     Dates: start: 20110101, end: 20110101

REACTIONS (1)
  - CARDIAC FAILURE [None]
